FAERS Safety Report 20432978 (Version 4)
Quarter: 2022Q1

REPORT INFORMATION
  Report Type: Spontaneous
  Country: US (occurrence: US)
  Receive Date: 20220205
  Receipt Date: 20220214
  Transmission Date: 20220424
  Serious: Yes (Other)
  Sender: FDA-Public Use
  Company Number: US-SANOFI-00948737

PATIENT
  Age: 40 Year
  Sex: Female

DRUGS (4)
  1. APIDRA SOLOSTAR [Suspect]
     Active Substance: INSULIN GLULISINE
     Indication: Diabetes mellitus
     Dosage: 15 TO 18 UNITS
  2. INSULIN LISPRO [Suspect]
     Active Substance: INSULIN LISPRO
  3. NOVOLOG [Suspect]
     Active Substance: INSULIN ASPART
  4. INSULIN ASPART [Suspect]
     Active Substance: INSULIN ASPART

REACTIONS (3)
  - Diabetes mellitus inadequate control [Unknown]
  - Injection site swelling [Unknown]
  - Injection site erythema [Unknown]
